FAERS Safety Report 7095432-X (Version None)
Quarter: 2010Q4

REPORT INFORMATION
  Report Type: 
  Country: None (occurrence: None)
  Receive Date: 20101111
  Receipt Date: 20101108
  Transmission Date: 20110411
  Serious: Yes (Hospitalization, Other)
  Sender: FDA-Public Use
  Company Number: IL-BRISTOL-MYERS SQUIBB COMPANY-15368087

PATIENT
  Age: 61 Year
  Sex: Female
  Weight: 50 kg

DRUGS (3)
  1. CETUXIMAB [Suspect]
     Indication: GASTROOESOPHAGEAL CANCER
     Dosage: CETUXIMAB 5MG/ML.MOST RECENT INF ON 25OCT10.
     Route: 042
     Dates: start: 20100523
  2. CISPLATIN [Suspect]
     Indication: GASTROOESOPHAGEAL CANCER
     Dosage: DAY 1 OF CYCLE.MOST RECENT INF ON 25OCT10.
     Route: 042
     Dates: start: 20100523
  3. XELODA [Suspect]
     Indication: GASTROOESOPHAGEAL CANCER
     Dosage: CAPECITABINE TABLET.MOST RECENT DOSE ON 27OCT10;DAY 1-15.
     Route: 048
     Dates: start: 20100523

REACTIONS (4)
  - ABDOMINAL PAIN [None]
  - HYPOMAGNESAEMIA [None]
  - HYPOPHOSPHATAEMIA [None]
  - INTESTINAL OBSTRUCTION [None]
